FAERS Safety Report 11476009 (Version 2)
Quarter: 2015Q3

REPORT INFORMATION
  Report Type: Report from Study
  Country: IN (occurrence: IN)
  Receive Date: 20150909
  Receipt Date: 20150914
  Transmission Date: 20151125
  Serious: Yes (Death, Hospitalization)
  Sender: FDA-Public Use
  Company Number: IN-BAXTER-2014BAX014338

PATIENT
  Age: 40 Year
  Sex: Female

DRUGS (1)
  1. DIANEAL PD-2 WITH DEXTROSE [Suspect]
     Active Substance: CALCIUM CHLORIDE\DEXTROSE MONOHYDRATE\MAGNESIUM CHLORIDE\SODIUM CHLORIDE\SODIUM LACTATE
     Indication: PERITONEAL DIALYSIS
     Dosage: 1 BAG
     Route: 033
     Dates: start: 20130318

REACTIONS (1)
  - Infection [Fatal]
